FAERS Safety Report 18594831 (Version 1)
Quarter: 2020Q4

REPORT INFORMATION
  Report Type: Spontaneous
  Country: US (occurrence: US)
  Receive Date: 20201209
  Receipt Date: 20201209
  Transmission Date: 20210114
  Serious: No
  Sender: FDA-Public Use
  Company Number: US-AMNEAL PHARMACEUTICALS-2020-AMRX-01457

PATIENT
  Age: 4 Year
  Sex: Female

DRUGS (2)
  1. FLUOCINOLONE ACETONIDE. [Suspect]
     Active Substance: FLUOCINOLONE ACETONIDE
     Dosage: 1X/DAY,  ONCE DAILY
     Route: 061
     Dates: start: 20200511
  2. FLUOCINOLONE ACETONIDE. [Suspect]
     Active Substance: FLUOCINOLONE ACETONIDE
     Indication: DRY SKIN
     Dosage: 118.28 MILLILITRE, 1X/DAY
     Route: 061
     Dates: start: 202004, end: 2020

REACTIONS (3)
  - Product physical consistency issue [Unknown]
  - Therapeutic product effect variable [Not Recovered/Not Resolved]
  - Product colour issue [Unknown]

NARRATIVE: CASE EVENT DATE: 20200511
